FAERS Safety Report 16834778 (Version 1)
Quarter: 2019Q3

REPORT INFORMATION
  Report Type: Spontaneous
  Country: CA (occurrence: CA)
  Receive Date: 20190920
  Receipt Date: 20190920
  Transmission Date: 20191005
  Serious: Yes (Hospitalization)
  Sender: FDA-Public Use
  Company Number: CA-TEVA-2019-CA-1111333

PATIENT
  Age: 71 Year
  Sex: Female

DRUGS (15)
  1. SILDENAFIL. [Suspect]
     Active Substance: SILDENAFIL
     Indication: CONNECTIVE TISSUE DISORDER
     Route: 048
  2. FISH OIL [Concomitant]
     Active Substance: FISH OIL
  3. OPSUMIT [Concomitant]
     Active Substance: MACITENTAN
  4. AMLODIPINE [Concomitant]
     Active Substance: AMLODIPINE BESYLATE
  5. HYDROCHLOROTHIAZIDE. [Concomitant]
     Active Substance: HYDROCHLOROTHIAZIDE
  6. TECTA [Concomitant]
     Active Substance: PANTOPRAZOLE MAGNESIUM
  7. VITAMIN D [Concomitant]
     Active Substance: VITAMIN D NOS
  8. TADALAFIL. [Suspect]
     Active Substance: TADALAFIL
     Indication: PULMONARY ARTERIAL HYPERTENSION
     Dosage: 40 MILLIGRAM DAILY;
     Route: 065
  9. TADALAFIL. [Suspect]
     Active Substance: TADALAFIL
     Indication: CONNECTIVE TISSUE DISORDER
     Dosage: 20 MILLIGRAM DAILY;
     Route: 065
  10. ALLOPURINOL. [Concomitant]
     Active Substance: ALLOPURINOL
  11. PANTOLOC [Concomitant]
     Active Substance: PANTOPRAZOLE SODIUM
  12. SILDENAFIL. [Suspect]
     Active Substance: SILDENAFIL
     Indication: PULMONARY ARTERIAL HYPERTENSION
     Route: 065
  13. TELMISARTAN. [Concomitant]
     Active Substance: TELMISARTAN
  14. FUROSEMIDE. [Concomitant]
     Active Substance: FUROSEMIDE
  15. LEVOTHYROXINE. [Concomitant]
     Active Substance: LEVOTHYROXINE

REACTIONS (6)
  - Swelling [Not Recovered/Not Resolved]
  - Discomfort [Not Recovered/Not Resolved]
  - Malaise [Not Recovered/Not Resolved]
  - Pyrexia [Not Recovered/Not Resolved]
  - Rash [Not Recovered/Not Resolved]
  - Off label use [Not Recovered/Not Resolved]
